FAERS Safety Report 9383510 (Version 2)
Quarter: 2013Q3

REPORT INFORMATION
  Report Type: Spontaneous
  Country: FR (occurrence: FR)
  Receive Date: 20130704
  Receipt Date: 20130711
  Transmission Date: 20140515
  Serious: Yes (Other)
  Sender: FDA-Public Use
  Company Number: FR-009507513-1306FRA013504

PATIENT
  Age: 76 Year
  Sex: Female

DRUGS (2)
  1. STROMECTOL [Suspect]
     Indication: ACARODERMATITIS
     Dosage: 3 DF, ONCE
     Route: 048
     Dates: start: 20130517, end: 20130517
  2. STROMECTOL [Suspect]
     Dosage: 3 DF, ONCE
     Route: 048
     Dates: start: 20130524, end: 20130524

REACTIONS (3)
  - Food intolerance [Recovering/Resolving]
  - Lipase increased [Recovering/Resolving]
  - Vomiting [Recovering/Resolving]
